FAERS Safety Report 10738501 (Version 1)
Quarter: 2015Q1

REPORT INFORMATION
  Report Type: Spontaneous
  Country: US (occurrence: None)
  Receive Date: 20150122
  Receipt Date: 20150122
  Transmission Date: 20150721
  Serious: Yes (Other)
  Sender: FDA-Public Use
  Company Number: None

PATIENT
  Age: 34 Year
  Sex: Female
  Weight: 60.78 kg

DRUGS (1)
  1. DULOXETIN [Suspect]
     Active Substance: DULOXETINE
     Indication: MAJOR DEPRESSION
     Dosage: DATES OF USE: FEB - JULY 2014, THEN AUG - DEC 2014, 40 MG (2 OF 20 MG), EVERY AM, BY MOUTH
     Route: 048
     Dates: start: 201402, end: 201412

REACTIONS (4)
  - Product quality issue [None]
  - Depression [None]
  - Drug intolerance [None]
  - Product substitution issue [None]

NARRATIVE: CASE EVENT DATE: 20141215
